FAERS Safety Report 16135091 (Version 1)
Quarter: 2019Q1

REPORT INFORMATION
  Report Type: Spontaneous
  Country: US (occurrence: US)
  Receive Date: 20190329
  Receipt Date: 20190329
  Transmission Date: 20190418
  Serious: Yes (Hospitalization, Disabling, Other)
  Sender: FDA-Public Use
  Company Number: US-BAYER-2019-060627

PATIENT
  Age: 75 Year
  Sex: Male

DRUGS (4)
  1. VANCOMYCIN [Concomitant]
     Active Substance: VANCOMYCIN
     Route: 042
  2. CIPRO [Suspect]
     Active Substance: CIPROFLOXACIN HYDROCHLORIDE
     Dosage: UNK
  3. JAKAFI [Suspect]
     Active Substance: RUXOLITINIB
     Indication: MYELOFIBROSIS
     Dosage: 15 MG, QD
     Route: 048
     Dates: start: 20120601
  4. JAKAFI [Suspect]
     Active Substance: RUXOLITINIB
     Indication: MYELOFIBROSIS
     Dosage: 20 MG, QD
     Dates: start: 20120601

REACTIONS (4)
  - Finger amputation [Recovering/Resolving]
  - Kidney infection [Recovering/Resolving]
  - Adverse drug reaction [None]
  - Myocardial infarction [Recovering/Resolving]
